FAERS Safety Report 7468330-7 (Version None)
Quarter: 2011Q2

REPORT INFORMATION
  Report Type: 
  Country: None (occurrence: None)
  Receive Date: 20110509
  Receipt Date: 20110505
  Transmission Date: 20111010
  Serious: Yes (Life-Threatening, Other)
  Sender: FDA-Public Use
  Company Number: CA-PFIZER INC-2011084455

PATIENT
  Age: 66 Year
  Sex: Female
  Weight: 91 kg

DRUGS (4)
  1. VARENICLINE TARTRATE [Suspect]
     Dosage: 1 MG, ALTERNATE DAY
     Route: 048
  2. ENTROPHEN [Concomitant]
     Dosage: UNK
  3. METFORMIN [Concomitant]
     Dosage: UNK
  4. GLYBURIDE [Concomitant]
     Dosage: UNK

REACTIONS (1)
  - BLOOD GLUCOSE INCREASED [None]
